FAERS Safety Report 7590073-X (Version None)
Quarter: 2011Q3

REPORT INFORMATION
  Report Type: 
  Country: None (occurrence: None)
  Receive Date: 20110705
  Receipt Date: 20110624
  Transmission Date: 20111222
  Serious: Yes (Hospitalization)
  Sender: FDA-Public Use
  Company Number: B0700818A

PATIENT
  Sex: Male
  Weight: 52 kg

DRUGS (28)
  1. CYMERIN [Suspect]
     Indication: STEM CELL TRANSPLANT
     Dosage: 300MGM2 PER DAY
     Dates: start: 20050119, end: 20050119
  2. DIFLUCAN [Concomitant]
     Dosage: 200MG PER DAY
     Route: 048
     Dates: start: 20050117, end: 20050127
  3. ZANTAC [Concomitant]
     Dosage: 100MG PER DAY
     Dates: start: 20050129, end: 20050221
  4. NEUTROGIN [Concomitant]
     Dates: start: 20050221, end: 20050222
  5. VICCLOX [Concomitant]
     Dosage: 250MG PER DAY
     Route: 042
     Dates: start: 20050128, end: 20050216
  6. DIFLUCAN [Concomitant]
     Dosage: 200MG PER DAY
     Route: 048
     Dates: start: 20050217
  7. LEVOFLOXACIN [Concomitant]
     Dosage: 300MG PER DAY
     Route: 048
     Dates: start: 20050224, end: 20050302
  8. SULFAMETHOXAZOLE [Concomitant]
     Dosage: 1IUAX PER DAY
     Route: 048
     Dates: start: 20050303
  9. ATARAX [Concomitant]
     Dosage: 25MG PER DAY
     Dates: start: 20050128, end: 20050206
  10. LEPETAN [Concomitant]
     Dosage: .2MG PER DAY
     Dates: start: 20050128, end: 20110206
  11. RITUXAN [Concomitant]
     Indication: STEM CELL TRANSPLANT
     Dosage: 375MGM2 PER DAY
     Route: 042
     Dates: start: 20050119, end: 20050119
  12. VALTREX [Concomitant]
     Dosage: 500MG PER DAY
     Route: 048
     Dates: start: 20050117, end: 20050127
  13. ATARAX [Concomitant]
     Dosage: 25MG PER DAY
     Dates: start: 20050126, end: 20050126
  14. ALKERAN [Suspect]
     Indication: STEM CELL TRANSPLANT
     Dosage: 140MGM2 PER DAY
     Route: 042
     Dates: start: 20050124, end: 20050124
  15. MAXIPIME [Concomitant]
     Dosage: 4G PER DAY
     Route: 042
     Dates: start: 20050129, end: 20050209
  16. FUNGUARD [Concomitant]
     Dosage: 150MG PER DAY
     Route: 042
     Dates: start: 20050206, end: 20050216
  17. SOLU-CORTEF [Concomitant]
     Dosage: 200MG PER DAY
     Dates: start: 20050126, end: 20050126
  18. MEROPENEM [Concomitant]
     Dosage: 1G PER DAY
     Route: 042
     Dates: start: 20050210, end: 20050221
  19. CYTARABINE [Suspect]
     Indication: STEM CELL TRANSPLANT
     Dosage: 200MGM2 PER DAY
     Dates: start: 20050120, end: 20050123
  20. VEPESID [Suspect]
     Indication: STEM CELL TRANSPLANT
     Dosage: 200MGM2 PER DAY
     Route: 042
     Dates: start: 20050120, end: 20050123
  21. FAMOTIDINE [Concomitant]
     Dosage: 20MG PER DAY
     Route: 048
     Dates: start: 20050117, end: 20050127
  22. ALESION [Concomitant]
     Dosage: 20MG PER DAY
     Route: 048
     Dates: start: 20050118, end: 20050118
  23. IBRUPROFEN [Concomitant]
     Dosage: 200MG PER DAY
     Route: 048
     Dates: start: 20050118, end: 20050118
  24. HAPTOGLOBIN [Concomitant]
     Dosage: 4IU3 PER DAY
     Route: 042
     Dates: start: 20050126, end: 20050126
  25. VANCOMYCIN [Concomitant]
     Dosage: 1G PER DAY
     Route: 042
     Dates: start: 20050131, end: 20050209
  26. VANCOMYCIN [Concomitant]
     Dosage: .5G PER DAY
     Route: 042
     Dates: start: 20050210, end: 20050214
  27. VALTREX [Concomitant]
     Dosage: 500MG PER DAY
     Route: 048
     Dates: start: 20050217
  28. FLUCONAZOLE [Concomitant]
     Dosage: 400MG PER DAY
     Route: 042
     Dates: start: 20050128, end: 20050205

REACTIONS (2)
  - PYREXIA [None]
  - INFECTION [None]
